FAERS Safety Report 8103570-5 (Version None)
Quarter: 2012Q1

REPORT INFORMATION
  Report Type: 
  Country: None (occurrence: None)
  Receive Date: 20120127
  Receipt Date: 20120123
  Transmission Date: 20120608
  Serious: Yes (Hospitalization, Other)
  Sender: FDA-Public Use
  Company Number: ADR-2012-00145

PATIENT
  Sex: Male

DRUGS (2)
  1. LIORESAL [Suspect]
     Indication: MUSCLE SPASTICITY
     Dosage: 819.7 MCG/DAY; SEE B5
  2. LIORESAL [Suspect]
     Indication: CEREBRAL PALSY
     Dosage: 819.7 MCG/DAY; SEE B5

REACTIONS (5)
  - HYPERTENSION [None]
  - TACHYCARDIA [None]
  - HYPERHIDROSIS [None]
  - WITHDRAWAL SYNDROME [None]
  - IMPLANT SITE CALCIFICATION [None]
